FAERS Safety Report 5801763-0 (Version None)
Quarter: 2008Q3

REPORT INFORMATION
  Report Type: 
  Country: None (occurrence: None)
  Receive Date: 20080707
  Receipt Date: 20080627
  Transmission Date: 20090109
  Serious: Yes (Other)
  Sender: FDA-Public Use
  Company Number: IT-AVENTIS-200815961GDDC

PATIENT
  Age: 43 Year
  Sex: Female

DRUGS (5)
  1. TAXOTERE [Suspect]
     Route: 042
     Dates: start: 20080618, end: 20080618
  2. CHLORPHENIRAMINE MALEATE [Concomitant]
     Indication: PREMEDICATION
  3. RANITIDINE HCL [Concomitant]
     Indication: PREMEDICATION
  4. ONDANSETRON [Concomitant]
     Indication: PREMEDICATION
  5. DEXAMETHASONE [Concomitant]
     Indication: PREMEDICATION

REACTIONS (3)
  - BACK PAIN [None]
  - DYSPNOEA [None]
  - LARYNGOSPASM [None]
